FAERS Safety Report 5126689-X (Version None)
Quarter: 2006Q4

REPORT INFORMATION
  Report Type: 
  Country: None (occurrence: None)
  Receive Date: 20061013
  Receipt Date: 20061011
  Transmission Date: 20070319
  Serious: Yes (Death, Hospitalization, Other)
  Sender: FDA-Public Use
  Company Number: PHBS2006BR15817

PATIENT
  Age: 74 Year
  Sex: Female

DRUGS (2)
  1. CLONIDINE HCL [Concomitant]
  2. DIOVAN [Suspect]
     Indication: HYPERTENSION
     Dosage: UNK, BID
     Route: 048

REACTIONS (9)
  - CARDIO-RESPIRATORY ARREST [None]
  - CATHETERISATION CARDIAC [None]
  - DEATH [None]
  - HAEMORRHAGE [None]
  - HYPOVOLAEMIA [None]
  - RENAL FAILURE [None]
  - RENAL IMPAIRMENT [None]
  - VASCULAR BYPASS GRAFT [None]
  - VENOUS OCCLUSION [None]
